FAERS Safety Report 5229928-X (Version None)
Quarter: 2007Q1

REPORT INFORMATION
  Report Type: 
  Country: None (occurrence: None)
  Receive Date: 20070206
  Receipt Date: 20070124
  Transmission Date: 20070707
  Serious: Yes (Other)
  Sender: FDA-Public Use
  Company Number: GB-PFIZER INC-2007002197

PATIENT
  Age: 70 Year
  Weight: 100 kg

DRUGS (8)
  1. LINEZOLID [Suspect]
     Indication: ENTEROCOCCAL INFECTION
     Route: 048
  2. LINEZOLID [Suspect]
     Indication: DIABETIC FOOT INFECTION
  3. INSULIN [Concomitant]
  4. SIMVASTATIN [Concomitant]
     Route: 048
  5. ATENOLOL [Concomitant]
     Route: 048
  6. FRUSEMIDE [Concomitant]
     Route: 048
  7. LOSARTAN POTASSIUM [Concomitant]
     Route: 048
  8. ALL OTHER THERAPEUTIC PRODUCTS [Concomitant]
     Route: 048

REACTIONS (2)
  - ANAEMIA [None]
  - IMMUNODEFICIENCY [None]
